FAERS Safety Report 4285090-1 (Version None)
Quarter: 2004Q1

REPORT INFORMATION
  Report Type: 
  Country: None (occurrence: None)
  Receive Date: 20040202
  Receipt Date: 20040122
  Transmission Date: 20041129
  Serious: Yes (Hospitalization)
  Sender: FDA-Public Use
  Company Number: MK200401-0289-1

PATIENT
  Sex: Female

DRUGS (4)
  1. ANAFRANIL [Suspect]
     Dosage: 150-175MG, DAILY
     Dates: start: 20021001, end: 20040122
  2. LARGACTIL [Suspect]
     Dates: start: 20021001, end: 20040122
  3. PROZAC [Suspect]
     Dates: start: 20021001, end: 20040122
  4. LYSANXIA [Concomitant]

REACTIONS (4)
  - COMPLICATIONS OF MATERNAL EXPOSURE TO THERAPEUTIC DRUGS [None]
  - GESTATIONAL DIABETES [None]
  - PREGNANCY [None]
  - SCIATICA [None]
